FAERS Safety Report 7341487-4 (Version None)
Quarter: 2011Q1

REPORT INFORMATION
  Report Type: 
  Country: None (occurrence: None)
  Receive Date: 20110309
  Receipt Date: 20110301
  Transmission Date: 20110831
  Serious: Yes (Hospitalization, Other)
  Sender: FDA-Public Use
  Company Number: US-ROCHE-763201

PATIENT
  Sex: Male
  Weight: 77.3 kg

DRUGS (9)
  1. DEXAMETHASONE [Concomitant]
  2. TEMODAR [Suspect]
     Indication: GLIOBLASTOMA
     Dosage: FREQUENCY: DAILY
     Route: 065
     Dates: start: 20110210, end: 20110225
  3. SAHA [Suspect]
     Indication: GLIOBLASTOMA
     Dosage: FREQUENCY: 400 MG ONE WEEK ON ONE WEEK OFF
     Route: 048
     Dates: start: 20110210, end: 20110216
  4. MULTIVITAMIN NOS [Concomitant]
  5. ALBUTEROL [Concomitant]
     Dosage: INHALER
  6. ZOFRAN [Concomitant]
     Indication: NAUSEA
     Dosage: 8 MG Q 8 HR AS NECESSARY
  7. LOVENOX [Concomitant]
  8. BEVACIZUMAB [Suspect]
     Indication: GLIOBLASTOMA
     Route: 042
     Dates: start: 20110210, end: 20110225
  9. LEVETIRACETAM [Concomitant]
     Route: 048

REACTIONS (7)
  - HYPOXIA [None]
  - HYPOKALAEMIA [None]
  - URINARY TRACT INFECTION [None]
  - HYPOPHOSPHATAEMIA [None]
  - INFECTION [None]
  - HAEMOGLOBIN [None]
  - PNEUMONIA [None]
